FAERS Safety Report 16240387 (Version 1)
Quarter: 2019Q2

REPORT INFORMATION
  Report Type: Spontaneous
  Country: US (occurrence: US)
  Receive Date: 20190425
  Receipt Date: 20190425
  Transmission Date: 20190711
  Serious: Yes (Other)
  Sender: FDA-Public Use
  Company Number: US-TEVA-2019-US-1041202

PATIENT
  Age: 63 Year
  Sex: Female

DRUGS (3)
  1. COPAXONE [Suspect]
     Active Substance: GLATIRAMER ACETATE
     Indication: MULTIPLE SCLEROSIS
     Route: 058
     Dates: start: 20080309, end: 20140319
  2. COPAXONE [Suspect]
     Active Substance: GLATIRAMER ACETATE
     Route: 058
     Dates: start: 20150501
  3. COPAXONE [Suspect]
     Active Substance: GLATIRAMER ACETATE
     Route: 058
     Dates: start: 20140321

REACTIONS (7)
  - Vascular injury [Unknown]
  - Heart rate increased [Unknown]
  - Asthenia [Unknown]
  - Dizziness [Unknown]
  - Flushing [Unknown]
  - Loss of consciousness [Unknown]
  - Walking aid user [Unknown]

NARRATIVE: CASE EVENT DATE: 2009
